FAERS Safety Report 7525637-2 (Version None)
Quarter: 2011Q2

REPORT INFORMATION
  Report Type: 
  Country: None (occurrence: None)
  Receive Date: 20110526
  Receipt Date: 20110513
  Transmission Date: 20111010
  Serious: Yes (Hospitalization)
  Sender: FDA-Public Use
  Company Number: 2011MA005873

PATIENT
  Age: 34 Year
  Sex: Male

DRUGS (1)
  1. CARBAMAZEPINE [Suspect]
     Indication: EPILEPSY

REACTIONS (9)
  - ALANINE AMINOTRANSFERASE INCREASED [None]
  - CYTOMEGALOVIRUS TEST POSITIVE [None]
  - DRUG RASH WITH EOSINOPHILIA AND SYSTEMIC SYMPTOMS [None]
  - BLOOD ALKALINE PHOSPHATASE INCREASED [None]
  - GAMMA-GLUTAMYLTRANSFERASE INCREASED [None]
  - ROSEOLOVIRUS TEST POSITIVE [None]
  - HEPATIC FUNCTION ABNORMAL [None]
  - ASPARTATE AMINOTRANSFERASE INCREASED [None]
  - SKIN TEST POSITIVE [None]
